FAERS Safety Report 6724836-7 (Version None)
Quarter: 2010Q2

REPORT INFORMATION
  Report Type: 
  Country: None (occurrence: None)
  Receive Date: 20100513
  Receipt Date: 20100513
  Transmission Date: 20101027
  Serious: No
  Sender: FDA-Public Use
  Company Number: None

PATIENT
  Age: 70 Year
  Sex: Female
  Weight: 52.1637 kg

DRUGS (2)
  1. CLINDAMYCIN [Suspect]
     Indication: SINUSITIS
     Dosage: 28 EACH PRESCRIPTION 1 CAPSULE 4 X DAY PO
     Route: 048
  2. DULCOLAX [Suspect]
     Indication: CONSTIPATION
     Dosage: 2 -1 PER DAY- 1 AT BEDTIME PO
     Route: 048

REACTIONS (4)
  - ABDOMINAL DISTENSION [None]
  - CONSTIPATION [None]
  - MUSCLE SPASMS [None]
  - VEIN PAIN [None]
